FAERS Safety Report 8851025 (Version 3)
Quarter: 2012Q4

REPORT INFORMATION
  Report Type: Report from Study
  Country: US (occurrence: US)
  Receive Date: 20121019
  Receipt Date: 20121113
  Transmission Date: 20130627
  Serious: Yes (Hospitalization)
  Sender: FDA-Public Use
  Company Number: US-JNJFOC-20121008015

PATIENT
  Age: 57 Year
  Sex: Female
  Weight: 117.94 kg

DRUGS (3)
  1. USTEKINUMAB [Suspect]
     Indication: PSORIASIS
     Route: 058
     Dates: start: 201103, end: 201104
  2. ETANERCEPT [Concomitant]
     Dates: start: 201105
  3. CORTICOSTEROIDS [Concomitant]

REACTIONS (3)
  - Pneumonia [Recovered/Resolved]
  - Cellulitis [Recovered/Resolved]
  - Lymphangitis [Recovered/Resolved]
